FAERS Safety Report 18481763 (Version 4)
Quarter: 2022Q1

REPORT INFORMATION
  Report Type: Spontaneous
  Country: US (occurrence: US)
  Receive Date: 20201109
  Receipt Date: 20220311
  Transmission Date: 20220423
  Serious: No
  Sender: FDA-Public Use
  Company Number: US-PFIZER INC-2020421773

PATIENT
  Age: 67 Year
  Sex: Male
  Weight: 86.168 kg

DRUGS (1)
  1. GENOTROPIN [Suspect]
     Active Substance: SOMATROPIN
     Dosage: .4MG 1 INJECTION DAILY
     Dates: start: 20201021

REACTIONS (5)
  - Back pain [Not Recovered/Not Resolved]
  - Muscle tightness [Not Recovered/Not Resolved]
  - Drug dose omission by device [Unknown]
  - Wrong technique in device usage process [Unknown]
  - Off label use [Unknown]

NARRATIVE: CASE EVENT DATE: 20201001
